FAERS Safety Report 10190497 (Version 1)
Quarter: 2014Q2

REPORT INFORMATION
  Report Type: Spontaneous
  Country: US (occurrence: US)
  Receive Date: 20140522
  Receipt Date: 20140522
  Transmission Date: 20141212
  Serious: Yes (Other)
  Sender: FDA-Public Use
  Company Number: US-SA-2013SA127445

PATIENT
  Age: 64 Year
  Sex: Male
  Weight: 65.31 kg

DRUGS (13)
  1. OXALIPLATIN [Suspect]
     Route: 065
  2. FU [Suspect]
     Route: 065
  3. FOLINIC ACID [Suspect]
     Route: 065
  4. ERBITUX [Suspect]
     Route: 065
  5. CPT-11 [Suspect]
     Route: 065
  6. AVASTIN [Suspect]
     Route: 065
  7. XELODA [Suspect]
     Route: 065
  8. ALL OTHER THERAPEUTIC PRODUCTS [Suspect]
     Route: 065
  9. FLOMAX [Concomitant]
  10. MYCOSTATIN [Concomitant]
  11. COZAAR [Concomitant]
  12. XELODA [Concomitant]
  13. PREDNISONE [Concomitant]

REACTIONS (1)
  - Disease progression [Unknown]
